FAERS Safety Report 4462053-4 (Version None)
Quarter: 2004Q3

REPORT INFORMATION
  Report Type: 
  Country: None (occurrence: None)
  Receive Date: 20040924
  Receipt Date: 20040910
  Transmission Date: 20050211
  Serious: Yes (Congenital Anomaly)
  Sender: FDA-Public Use
  Company Number: S04-USA-00905-02

PATIENT

DRUGS (5)
  1. CELEXA [Suspect]
     Indication: DEPRESSION
     Dosage: 30 MG QD PO
     Route: 048
     Dates: end: 20040512
  2. WELLBUTRIN [Concomitant]
  3. TEMAZEPAM [Concomitant]
  4. TYLENOL [Concomitant]
  5. ORTHO TRI-CYCLEN [Concomitant]

REACTIONS (7)
  - AMNIOCENTESIS ABNORMAL [None]
  - BREECH PRESENTATION [None]
  - CAESAREAN SECTION [None]
  - DRUG EXPOSURE DURING PREGNANCY [None]
  - HIP DYSPLASIA [None]
  - JAUNDICE NEONATAL [None]
  - NEONATAL DISORDER [None]
